FAERS Safety Report 9793089 (Version 1)
Quarter: 2013Q4

REPORT INFORMATION
  Report Type: Spontaneous
  Country: US (occurrence: None)
  Receive Date: 20131231
  Receipt Date: 20131231
  Transmission Date: 20140711
  Serious: Yes (Hospitalization)
  Sender: FDA-Public Use
  Company Number: None

PATIENT
  Age: 3 Year
  Sex: Female
  Weight: 12.3 kg

DRUGS (6)
  1. PEG-L-ASPARGINASE [Suspect]
  2. DEXAMETHASONE [Suspect]
  3. CYTARABINE [Suspect]
  4. LEUCOVORIN CALCIUM [Suspect]
  5. METHOTREXATE [Suspect]
  6. VINCRISTINE SULFATE [Suspect]

REACTIONS (14)
  - Neutropenia [None]
  - Mental status changes [None]
  - Pleural effusion [None]
  - Mucosal inflammation [None]
  - Hepatic failure [None]
  - Haemodynamic instability [None]
  - Coagulopathy [None]
  - Anaemia [None]
  - Hepatomegaly [None]
  - Streptococcus test positive [None]
  - Staphylococcus test positive [None]
  - Herpes simplex [None]
  - Epstein-Barr virus infection [None]
  - Human herpesvirus 6 infection [None]
